FAERS Safety Report 12143601 (Version 2)
Quarter: 2016Q2

REPORT INFORMATION
  Report Type: Spontaneous
  Country: ES (occurrence: ES)
  Receive Date: 20160304
  Receipt Date: 20160401
  Transmission Date: 20160815
  Serious: Yes (Hospitalization, Other)
  Sender: FDA-Public Use
  Company Number: ES-ACCORD-038433

PATIENT
  Age: 42 Year
  Sex: Female

DRUGS (1)
  1. GEMCITABINE/GEMCITABINE HYDROCHLORIDE [Suspect]
     Active Substance: GEMCITABINE\GEMCITABINE HYDROCHLORIDE
     Indication: ADENOCARCINOMA PANCREAS
     Dosage: INITIALLY RECEIVED TWO COURSES (TOTAL 6 INFUSION),?RECEIVED 4 HOURS BEFORE RADIATION.

REACTIONS (4)
  - Hypoalbuminaemia [Recovered/Resolved]
  - Bone marrow failure [Recovered/Resolved]
  - Bone marrow toxicity [None]
  - Erysipelas [Recovered/Resolved]
